FAERS Safety Report 5041677-X (Version None)
Quarter: 2006Q3

REPORT INFORMATION
  Report Type: 
  Country: None (occurrence: None)
  Receive Date: 20060704
  Receipt Date: 20060628
  Transmission Date: 20061208
  Serious: Yes (Hospitalization, Other)
  Sender: FDA-Public Use
  Company Number: US-RB-3516-2006

PATIENT
  Sex: Female

DRUGS (6)
  1. SUBOXONE [Suspect]
     Route: 060
     Dates: start: 20060607, end: 20060620
  2. LISINOPRIL [Concomitant]
     Indication: HYPERTENSION
     Route: 048
  3. MEDICINALPRODUCT NOT SPECIFIED BY SENDER [Concomitant]
     Indication: HYPERTENSION
     Route: 059
  4. LORAZEPAM [Concomitant]
     Indication: ANXIETY
     Route: 048
  5. METOPROLOL TARTRATE [Concomitant]
     Indication: HYPERTENSION
     Route: 048
  6. MEDICINALPRODUCT NOT SPECIFIED BY SENDER [Concomitant]
     Indication: ANXIETY
     Route: 048

REACTIONS (2)
  - LOSS OF CONSCIOUSNESS [None]
  - SPEECH DISORDER [None]
